FAERS Safety Report 5469520-5 (Version None)
Quarter: 2007Q3

REPORT INFORMATION
  Report Type: 
  Country: None (occurrence: None)
  Receive Date: 20070927
  Receipt Date: 20070925
  Transmission Date: 20080115
  Serious: Yes (Hospitalization)
  Sender: FDA-Public Use
  Company Number: A0684425A

PATIENT
  Sex: Female
  Weight: 70 kg

DRUGS (2)
  1. AEROLIN [Suspect]
     Indication: ASTHMA
     Route: 055
     Dates: start: 20060101
  2. CLENIL [Concomitant]
     Route: 065
     Dates: start: 20060901

REACTIONS (2)
  - ASTHMATIC CRISIS [None]
  - DRUG INEFFECTIVE [None]
